FAERS Safety Report 5270321-1 (Version None)
Quarter: 2007Q1

REPORT INFORMATION
  Report Type: 
  Country: None (occurrence: None)
  Receive Date: 20070320
  Receipt Date: 20070307
  Transmission Date: 20070707
  Serious: Yes (Hospitalization, Other)
  Sender: FDA-Public Use
  Company Number: US-PFIZER INC-2006119448

PATIENT
  Sex: Male

DRUGS (2)
  1. CELEBREX [Suspect]
     Indication: PAIN
     Route: 048
  2. VIOXX [Suspect]
     Route: 048
     Dates: start: 20021011

REACTIONS (4)
  - CEREBROVASCULAR ACCIDENT [None]
  - CHOLECYSTITIS [None]
  - MYOCARDIAL INFARCTION [None]
  - SEPSIS [None]
